FAERS Safety Report 13196412 (Version 1)
Quarter: 2017Q1

REPORT INFORMATION
  Report Type: Spontaneous
  Country: GB (occurrence: GB)
  Receive Date: 20170208
  Receipt Date: 20170208
  Transmission Date: 20170428
  Serious: Yes (Hospitalization)
  Sender: FDA-Public Use
  Company Number: GB-BAYER-2017-023949

PATIENT
  Age: 55 Year
  Sex: Female

DRUGS (4)
  1. SERETIDE [Concomitant]
     Active Substance: FLUTICASONE PROPIONATE\SALMETEROL XINAFOATE
  2. ELLESTE DUET [Concomitant]
  3. SALBUTAMOL [Concomitant]
     Active Substance: ALBUTEROL
  4. NAPROXEN SODIUM ({= 220 MG) [Suspect]
     Active Substance: NAPROXEN SODIUM
     Indication: ARTHRALGIA
     Dosage: 500 MG, UNK
     Route: 048

REACTIONS (1)
  - Respiratory arrest [Recovering/Resolving]
